FAERS Safety Report 9386779 (Version 1)
Quarter: 2013Q3

REPORT INFORMATION
  Report Type: Spontaneous
  Country: US (occurrence: US)
  Receive Date: 20130708
  Receipt Date: 20130708
  Transmission Date: 20140515
  Serious: No
  Sender: FDA-Public Use
  Company Number: US-PFIZER INC-2013198718

PATIENT
  Age: 55 Year
  Sex: Female
  Weight: 56.69 kg

DRUGS (2)
  1. GABAPENTIN [Suspect]
     Dosage: THREE CAPSULES OF 100MG IN THE MORNING, TWO CAPSULES OF 100MG IN THE AFTERNOON AND TWO CAPSULES OF 1
     Route: 048
  2. FISH OIL [Concomitant]
     Dosage: 1200 MG, UNK

REACTIONS (3)
  - Gait disturbance [Unknown]
  - Musculoskeletal stiffness [Unknown]
  - Condition aggravated [Unknown]
